FAERS Safety Report 7694178-4 (Version None)
Quarter: 2011Q3

REPORT INFORMATION
  Report Type: 
  Country: None (occurrence: None)
  Receive Date: 20110819
  Receipt Date: 20110810
  Transmission Date: 20111222
  Serious: Yes (Hospitalization)
  Sender: FDA-Public Use
  Company Number: US-ELI_LILLY_AND_COMPANY-US201108003422

PATIENT
  Age: 40 Year
  Sex: Female

DRUGS (3)
  1. ADCIRCA [Suspect]
  2. TRACLEER [Concomitant]
  3. REMODULIN [Concomitant]
     Indication: PULMONARY ARTERIAL HYPERTENSION
     Dosage: UNK
     Route: 058
     Dates: start: 20091110

REACTIONS (3)
  - VOMITING [None]
  - NAUSEA [None]
  - DEHYDRATION [None]
